FAERS Safety Report 15594046 (Version 2)
Quarter: 2018Q4

REPORT INFORMATION
  Report Type: Report from Study
  Country: AR (occurrence: AR)
  Receive Date: 20181107
  Receipt Date: 20181120
  Transmission Date: 20190205
  Serious: Yes (Death, Hospitalization)
  Sender: FDA-Public Use
  Company Number: AR-BAYER-2018-203709

PATIENT
  Sex: Male

DRUGS (3)
  1. LOSACOR [Concomitant]
     Active Substance: LOSARTAN POTASSIUM
     Dosage: UNK
  2. NEXAVAR [Suspect]
     Active Substance: SORAFENIB
     Indication: THYROID CANCER
     Dosage: 400 MG DAILY
     Route: 048
     Dates: start: 20180718, end: 20181022
  3. ARTERIOSAN [Concomitant]
     Dosage: UNK

REACTIONS (1)
  - Condition aggravated [Fatal]
